FAERS Safety Report 15943577 (Version 2)
Quarter: 2019Q1

REPORT INFORMATION
  Report Type: Report from Study
  Country: BR (occurrence: BR)
  Receive Date: 20190210
  Receipt Date: 20190212
  Transmission Date: 20190417
  Serious: Yes (Death, Hospitalization)
  Sender: FDA-Public Use
  Company Number: PHHY2019BR029901

PATIENT
  Age: 75 Year
  Sex: Female
  Weight: 67 kg

DRUGS (1)
  1. ACLASTA [Suspect]
     Active Substance: ZOLEDRONIC ACID
     Indication: OSTEOPOROSIS
     Dosage: UNK
     Route: 065

REACTIONS (5)
  - Abdominal pain [Fatal]
  - Intestinal ischaemia [Fatal]
  - Septic shock [Fatal]
  - Abdominal sepsis [Fatal]
  - Essential hypertension [Fatal]

NARRATIVE: CASE EVENT DATE: 20181102
